FAERS Safety Report 13651377 (Version 1)
Quarter: 2017Q2

REPORT INFORMATION
  Report Type: Spontaneous
  Country: FR (occurrence: FR)
  Receive Date: 20170614
  Receipt Date: 20170614
  Transmission Date: 20170830
  Serious: Yes (Hospitalization, Other)
  Sender: FDA-Public Use
  Company Number: FR-PFIZER INC-2017252918

PATIENT
  Age: 72 Year
  Sex: Female

DRUGS (6)
  1. GEMCITABINE [Suspect]
     Active Substance: GEMCITABINE\GEMCITABINE HYDROCHLORIDE
     Indication: ADENOCARCINOMA PANCREAS
     Dosage: 1600 MG, DAILY (ACCORDING TO THE CYCLE)
     Route: 041
     Dates: start: 20161018, end: 20170222
  2. ALDACTAZINE [Concomitant]
     Active Substance: ALTHIAZIDE\SPIRONOLACTONE
     Dosage: UNK
  3. OXALIPLATINE ACCORD [Suspect]
     Active Substance: OXALIPLATIN
     Indication: ADENOCARCINOMA PANCREAS
     Dosage: 135 MG, DAILY (ACCORDING TO THE CYCLE)
     Route: 041
     Dates: start: 20161018, end: 20170222
  4. ONDANSETRON ACCORD [Concomitant]
     Active Substance: ONDANSETRON
     Indication: PREMEDICATION
     Dosage: 8 MG, 1X/DAY
     Route: 042
     Dates: start: 20161018, end: 20170222
  5. METHYLPREDNISOLONE MYLAN /00049602/ [Concomitant]
     Active Substance: METHYLPREDNISOLONE SODIUM SUCCINATE
     Indication: PREMEDICATION
     Dosage: 60 MG, 1X/DAY
     Route: 042
     Dates: start: 20161018, end: 20170222
  6. CELIPROLOL [Concomitant]
     Active Substance: CELIPROLOL
     Dosage: UNK

REACTIONS (3)
  - Paraesthesia [Recovered/Resolved]
  - Neuropathy peripheral [Recovered/Resolved]
  - Dysaesthesia [Recovered/Resolved]

NARRATIVE: CASE EVENT DATE: 201611
